FAERS Safety Report 11544825 (Version 1)
Quarter: 2015Q3

REPORT INFORMATION
  Report Type: Spontaneous
  Country: GB (occurrence: GB)
  Receive Date: 20150924
  Receipt Date: 20150924
  Transmission Date: 20151125
  Serious: Yes (Other)
  Sender: FDA-Public Use
  Company Number: GB-ACTAVIS-2015-20283

PATIENT
  Age: 5 Day
  Sex: Male
  Weight: 3.72 kg

DRUGS (5)
  1. ACYCLOVIR (UNKNOWN) [Suspect]
     Active Substance: ACYCLOVIR
     Indication: SEIZURE
     Dosage: 75 MG, TID
     Route: 042
     Dates: start: 20150827, end: 20150830
  2. PHENYTOIN. [Concomitant]
     Active Substance: PHENYTOIN
     Indication: SEIZURE
     Dosage: 66 MG, UNK
     Route: 042
     Dates: start: 20150827, end: 20150827
  3. BENZYLPENICILLIN [Concomitant]
     Active Substance: PENICILLIN G
     Indication: SEPSIS
     Dosage: 25 MG/KG, BID
     Route: 042
     Dates: start: 20150827, end: 20150829
  4. GENTAMICIN. [Concomitant]
     Active Substance: GENTAMICIN
     Indication: SEPSIS
     Dosage: 5 MG/KG, DAILY
     Route: 042
     Dates: start: 20150827, end: 20150828
  5. PHENOBARBITONE                     /00023201/ [Concomitant]
     Active Substance: PHENOBARBITAL
     Indication: SEIZURE
     Dosage: 18 MG, DAILY
     Route: 048
     Dates: start: 20150828

REACTIONS (1)
  - Apnoea neonatal [Recovered/Resolved]
